FAERS Safety Report 6920088 (Version 3)
Quarter: 2020Q3

REPORT INFORMATION
  Report Type: Report from Study
  Country: DE (occurrence: DE)
  Receive Date: 20090225
  Receipt Date: 20130306
  Transmission Date: 20201104
  Serious: Yes (Hospitalization)
  Sender: FDA-Public Use
  Company Number: DE-ROCHE-615126

PATIENT
  Age: 38 Year
  Sex: Female
  Weight: 88 kg

DRUGS (4)
  1. FALITHROM [Suspect]
     Active Substance: PHENPROCOUMON
     Indication: THROMBOSIS
     Route: 048
  2. CAPECITABINE. [Suspect]
     Active Substance: CAPECITABINE
     Indication: BREAST CANCER METASTATIC
     Route: 048
  3. BEVACIZUMAB. [Suspect]
     Active Substance: BEVACIZUMAB
     Indication: BREAST CANCER METASTATIC
     Route: 042
  4. IBANDRONIC ACID. [Suspect]
     Active Substance: IBANDRONIC ACID
     Indication: METASTASES TO BONE
     Route: 042

REACTIONS (4)
  - Dizziness [Unknown]
  - Metastases to central nervous system [Unknown]
  - Headache [Unknown]
  - General physical health deterioration [Unknown]

NARRATIVE: CASE EVENT DATE: 200901
